FAERS Safety Report 24021610 (Version 1)
Quarter: 2024Q2

REPORT INFORMATION
  Report Type: Spontaneous
  Country: US (occurrence: US)
  Receive Date: 20240627
  Receipt Date: 20240627
  Transmission Date: 20240715
  Serious: Yes (Other)
  Sender: FDA-Public Use
  Company Number: US-MALLINCKRODT-MNK202404096

PATIENT
  Age: 4 Week
  Sex: Male

DRUGS (1)
  1. NITRIC OXIDE [Suspect]
     Active Substance: NITRIC OXIDE
     Indication: Newborn persistent pulmonary hypertension
     Dosage: UNKNOWN
     Route: 055

REACTIONS (3)
  - Septic pulmonary embolism [Unknown]
  - Enterococcal infection [Unknown]
  - Staphylococcal infection [Unknown]
